FAERS Safety Report 9986354 (Version 2)
Quarter: 2014Q1

REPORT INFORMATION
  Report Type: Report from Study
  Country: US (occurrence: US)
  Receive Date: 20140307
  Receipt Date: 20140307
  Transmission Date: 20141002
  Serious: No
  Sender: FDA-Public Use
  Company Number: US-ABBVIE-12P-163-1008579-00

PATIENT
  Age: 46 Year
  Sex: Female

DRUGS (7)
  1. HUMIRA [Suspect]
     Indication: PSORIATIC ARTHROPATHY
     Dates: start: 20121009, end: 201304
  2. FLONASE [Concomitant]
     Indication: ALLERGIC SINUSITIS
  3. CELEBREX [Concomitant]
     Indication: PAIN
     Dosage: DAILY
  4. PROVENTIL [Concomitant]
     Indication: ASTHMA
     Route: 055
  5. FLUOCINONIDE OINTMENT [Concomitant]
     Indication: PSORIASIS
     Dosage: 3 TIMES PER WEEK FOR PSORIASIS AND ONCE A MONTH TO SCALP
  6. FLUOCINONIDE OINTMENT [Concomitant]
     Indication: PSORIASIS
  7. VICODIN [Concomitant]
     Indication: PAIN
     Dosage: 2-3 TIMES A DAY
     Dates: end: 201304

REACTIONS (9)
  - Rash pruritic [Not Recovered/Not Resolved]
  - Pain [Not Recovered/Not Resolved]
  - Injection site swelling [Not Recovered/Not Resolved]
  - Injection site reaction [Not Recovered/Not Resolved]
  - Glucose tolerance impaired [Not Recovered/Not Resolved]
  - Injection site nodule [Recovered/Resolved]
  - Injection site induration [Recovered/Resolved]
  - Urticaria [Recovered/Resolved]
  - Injection site pain [Recovered/Resolved]
